FAERS Safety Report 6422462-0 (Version None)
Quarter: 2009Q4

REPORT INFORMATION
  Report Type: 
  Country: None (occurrence: None)
  Receive Date: 20091030
  Receipt Date: 20091020
  Transmission Date: 20100525
  Serious: Yes (Hospitalization, Other)
  Sender: FDA-Public Use
  Company Number: AU-AMGEN-US360100

PATIENT
  Sex: Female

DRUGS (7)
  1. PANITUMUMAB [Suspect]
     Indication: COLORECTAL CANCER
     Route: 042
     Dates: start: 20090626
  2. AMG 102 - BLINDED [Suspect]
     Indication: NEOPLASM MALIGNANT
     Route: 042
     Dates: start: 20090626
  3. AMG 479 - BLINDED [Suspect]
     Indication: NEOPLASM
     Route: 042
     Dates: start: 20090626
  4. DEXAMETHASONE [Concomitant]
  5. FRUSEMIDE [Concomitant]
  6. CLARATYNE [Concomitant]
  7. SOMAC [Concomitant]

REACTIONS (4)
  - DEEP VEIN THROMBOSIS [None]
  - JUGULAR VEIN THROMBOSIS [None]
  - MALIGNANT NEOPLASM PROGRESSION [None]
  - VENA CAVA THROMBOSIS [None]
